FAERS Safety Report 25790846 (Version 1)
Quarter: 2025Q3

REPORT INFORMATION
  Report Type: Spontaneous
  Country: EU (occurrence: EU)
  Receive Date: 20250911
  Receipt Date: 20250911
  Transmission Date: 20251021
  Serious: Yes (Hospitalization, Other)
  Sender: Zenara Pharma Private
  Company Number: EU-Zenara-000002

PATIENT
  Age: 15 Year
  Sex: Female

DRUGS (2)
  1. RISPERIDONE [Concomitant]
     Active Substance: RISPERIDONE
     Indication: Post-traumatic stress disorder
     Route: 065
  2. SERTRALINE [Suspect]
     Active Substance: SERTRALINE HYDROCHLORIDE
     Indication: Post-traumatic stress disorder
     Route: 065

REACTIONS (3)
  - Eosinophilic pneumonia acute [Recovered/Resolved]
  - Off label use [Unknown]
  - Product prescribing issue [Unknown]
